FAERS Safety Report 10493793 (Version 1)
Quarter: 2014Q4

REPORT INFORMATION
  Report Type: Spontaneous
  Country: US (occurrence: US)
  Receive Date: 20141002
  Receipt Date: 20141002
  Transmission Date: 20150528
  Serious: Yes (Hospitalization)
  Sender: FDA-Public Use
  Company Number: PHHY2014US126856

PATIENT
  Age: 18 Year
  Sex: Female

DRUGS (2)
  1. LAMOTRIGINE. [Suspect]
     Active Substance: LAMOTRIGINE
     Indication: BIPOLAR DISORDER
  2. AZITHROMYCIN [Suspect]
     Active Substance: AZITHROMYCIN ANHYDROUS
     Indication: UPPER RESPIRATORY TRACT INFECTION

REACTIONS (20)
  - Rash maculo-papular [Recovered/Resolved]
  - Blister [Recovered/Resolved]
  - Calculus urethral [Unknown]
  - Malaise [Recovered/Resolved]
  - Vaginal lesion [Recovered/Resolved]
  - Hydronephrosis [Unknown]
  - Pyrexia [Recovered/Resolved]
  - Rash generalised [Recovered/Resolved]
  - Mucocutaneous rash [Recovered/Resolved]
  - Urine output decreased [Unknown]
  - Toxic epidermal necrolysis [Unknown]
  - Corneal lesion [Recovered/Resolved]
  - Blood creatinine increased [Unknown]
  - Ureteric stenosis [Unknown]
  - Ureteric perforation [Unknown]
  - Skin exfoliation [Recovered/Resolved]
  - Oral disorder [Recovered/Resolved]
  - Ureteric obstruction [Unknown]
  - Fatigue [Recovered/Resolved]
  - Anuria [Unknown]
